FAERS Safety Report 23083363 (Version 1)
Quarter: 2023Q4

REPORT INFORMATION
  Report Type: Spontaneous
  Country: BE (occurrence: BE)
  Receive Date: 20231019
  Receipt Date: 20231019
  Transmission Date: 20240109
  Serious: Yes (Death, Other)
  Sender: FDA-Public Use
  Company Number: BE-009507513-2310BEL007814

PATIENT
  Sex: Male

DRUGS (1)
  1. PEMBROLIZUMAB [Suspect]
     Active Substance: PEMBROLIZUMAB
     Indication: Cholangiocarcinoma
     Dosage: UNKNOWN, Q3W
     Dates: start: 202212, end: 202307

REACTIONS (4)
  - Death [Fatal]
  - Large intestine perforation [Unknown]
  - Adverse drug reaction [Unknown]
  - Colitis [Unknown]

NARRATIVE: CASE EVENT DATE: 20230101
